FAERS Safety Report 11807768 (Version 1)
Quarter: 2015Q4

REPORT INFORMATION
  Report Type: Spontaneous
  Country: US (occurrence: US)
  Receive Date: 20151207
  Receipt Date: 20151207
  Transmission Date: 20160305
  Serious: Yes (Other)
  Sender: FDA-Public Use
  Company Number: US-BAYER-2015-479036

PATIENT
  Age: 22 Year
  Sex: Female

DRUGS (1)
  1. ALEVE PM [Suspect]
     Active Substance: DIPHENHYDRAMINE HYDROCHLORIDE\NAPROXEN SODIUM
     Dosage: 15 DF, UNK
     Route: 048
     Dates: start: 20151128

REACTIONS (3)
  - Intentional self-injury [None]
  - Somnolence [None]
  - Vomiting [None]

NARRATIVE: CASE EVENT DATE: 20151128
